FAERS Safety Report 9814302 (Version 1)
Quarter: 2014Q1

REPORT INFORMATION
  Report Type: Spontaneous
  Country: FR (occurrence: FR)
  Receive Date: 20140113
  Receipt Date: 20140113
  Transmission Date: 20141002
  Serious: Yes (Hospitalization)
  Sender: FDA-Public Use
  Company Number: PHHY2014FR003177

PATIENT
  Age: 55 Year
  Sex: Male

DRUGS (7)
  1. NEORAL [Suspect]
     Dosage: 25 MG, BID
     Route: 048
     Dates: start: 201307, end: 20131201
  2. CELLCEPT [Suspect]
     Dosage: 1 G, BID
     Dates: start: 201307
  3. TAHOR [Suspect]
     Dosage: 40 MG, QD
     Route: 048
     Dates: start: 201307, end: 20131129
  4. CORTANCYL [Concomitant]
     Dosage: 5 MG, QD
  5. LASILIX [Concomitant]
  6. VALACICLOVIR [Concomitant]
     Dosage: 500 MG, BID
  7. BACTRIM [Concomitant]
     Dosage: 0.25 DF, QD

REACTIONS (3)
  - Ascites [Recovering/Resolving]
  - Generalised oedema [Recovering/Resolving]
  - Oedema peripheral [Recovering/Resolving]
